FAERS Safety Report 8033047-7 (Version None)
Quarter: 2012Q1

REPORT INFORMATION
  Report Type: 
  Country: None (occurrence: None)
  Receive Date: 20120110
  Receipt Date: 20120104
  Transmission Date: 20120608
  Serious: Yes (Other)
  Sender: FDA-Public Use
  Company Number: US-PFIZER INC-2012003130

PATIENT
  Sex: Male

DRUGS (12)
  1. REVLIMID [Suspect]
     Dosage: 25 MG, 1X/DAY (28 DAYS ON, 1 WEEK OFF)
     Route: 048
     Dates: start: 20110718
  2. REVLIMID [Suspect]
     Dosage: 20 MG, 1X/DAY
     Route: 048
     Dates: start: 20110711, end: 20110717
  3. DROTAVERINE HYDROCHLORIDE [Concomitant]
  4. NORVASC [Concomitant]
     Indication: HYPERTENSION
     Dosage: 5 MG, 1X/DAY (QD)
     Route: 048
  5. SPIRONOLACTONE [Concomitant]
     Indication: HYPERTENSION
     Dosage: 20 MG, 1X/DAY
  6. LOVAZA [Concomitant]
     Dosage: UNK, QD
  7. NEURONTIN [Suspect]
     Dosage: UNK
  8. AMBIEN [Concomitant]
     Indication: SLEEP DISORDER
     Dosage: UNK, HS, PRN
     Route: 048
  9. ASPIRIN [Concomitant]
     Indication: THROMBOSIS PROPHYLAXIS
     Dosage: 81 MG, 1X/DAY (QD)
     Route: 048
  10. ALDACTONE [Concomitant]
     Dosage: UNK
  11. REVLIMID [Suspect]
     Indication: MULTIPLE MYELOMA
     Dosage: 10 MG, 1X/DAY
     Route: 048
     Dates: start: 20090427, end: 20090629
  12. REVLIMID [Suspect]
     Dosage: 10 MG, 1X/DAY (21 DAYS ON, 1 WEEK OFF)
     Route: 048
     Dates: start: 20110117

REACTIONS (3)
  - BLOOD CREATINE PHOSPHOKINASE INCREASED [None]
  - FATIGUE [None]
  - MULTIPLE MYELOMA [None]
